FAERS Safety Report 5004905-2 (Version None)
Quarter: 2006Q1

REPORT INFORMATION
  Report Type: 
  Country: None (occurrence: None)
  Receive Date: 20060321
  Receipt Date: 20060201
  Transmission Date: 20060701
  Serious: No
  Sender: FDA-Public Use
  Company Number: 2006US000297

PATIENT
  Age: 61 Year
  Sex: Male

DRUGS (4)
  1. VESICARE [Suspect]
     Indication: NOCTURIA
     Dosage: 5 MG, UNK, ORAL
     Route: 048
     Dates: start: 20060101, end: 20060101
  2. HYTRIN [Concomitant]
  3. NORVASC [Concomitant]
  4. LITHIUM CARBONATE [Concomitant]

REACTIONS (1)
  - DRUG INEFFECTIVE [None]
